FAERS Safety Report 14744189 (Version 1)
Quarter: 2018Q2

REPORT INFORMATION
  Report Type: Spontaneous
  Country: JP (occurrence: JP)
  Receive Date: 20180411
  Receipt Date: 20180411
  Transmission Date: 20180711
  Serious: No
  Sender: FDA-Public Use
  Company Number: JP-LUPIN PHARMACEUTICALS INC.-2018-02698

PATIENT
  Age: 52 Year
  Sex: Male
  Weight: 59 kg

DRUGS (10)
  1. TRAMADOL. [Concomitant]
     Active Substance: TRAMADOL
     Indication: NEURALGIA
     Dosage: 200 MG, QD
     Route: 065
  2. MORPHINE [Suspect]
     Active Substance: MORPHINE
     Indication: PAIN
     Dosage: 60 MG, SUSTAINED RELEASE PREPARATION
     Route: 048
  3. IRINOTECAN [Concomitant]
     Active Substance: IRINOTECAN
     Indication: COLON CANCER METASTATIC
     Dosage: UNK,CYCLE
     Route: 065
  4. KETAMINE [Concomitant]
     Active Substance: KETAMINE
     Indication: POSTOPERATIVE ANALGESIA
     Dosage: UNK
     Route: 042
  5. PREGABALIN. [Concomitant]
     Active Substance: PREGABALIN
     Indication: NEURALGIA
     Dosage: 150 MG, QD
     Route: 065
  6. PARACETAMOL [Concomitant]
     Active Substance: ACETAMINOPHEN
     Indication: NEURALGIA
     Dosage: 2400 MG, QD
     Route: 065
  7. BEVACIZUMAB. [Concomitant]
     Active Substance: BEVACIZUMAB
     Indication: COLON CANCER METASTATIC
     Dosage: UNK, CYCLE
     Route: 065
  8. FLUOROURACIL. [Concomitant]
     Active Substance: FLUOROURACIL
     Indication: COLON CANCER METASTATIC
     Dosage: UNK, CYCLE
     Route: 065
  9. FOLINIC ACID [Concomitant]
     Active Substance: LEUCOVORIN
     Indication: COLON CANCER METASTATIC
     Dosage: UNK,CYCLE
     Route: 065
  10. KETAMINE [Concomitant]
     Active Substance: KETAMINE
     Dosage: 50 MG, INTRAVENOUS KETAMINE DILUTED WITH SYRUP
     Route: 048

REACTIONS (1)
  - Somnolence [Unknown]
